FAERS Safety Report 12889494 (Version 1)
Quarter: 2016Q4

REPORT INFORMATION
  Report Type: Spontaneous
  Country: IE (occurrence: IE)
  Receive Date: 20161027
  Receipt Date: 20161027
  Transmission Date: 20170207
  Serious: Yes (Other)
  Sender: FDA-Public Use
  Company Number: IE-PFIZER INC-2016498128

PATIENT
  Age: 17 Month
  Sex: Female

DRUGS (1)
  1. GENOTROPIN [Suspect]
     Active Substance: SOMATROPIN
     Indication: PRADER-WILLI SYNDROME
     Dosage: 0.2 MG, 1X/DAY (7 DAYS/WEEK)

REACTIONS (2)
  - Upper respiratory tract infection [Recovered/Resolved]
  - Injection site bruising [Recovered/Resolved]
